FAERS Safety Report 6416682-9 (Version None)
Quarter: 2009Q4

REPORT INFORMATION
  Report Type: 
  Country: None (occurrence: None)
  Receive Date: 20091027
  Receipt Date: 20091020
  Transmission Date: 20100525
  Serious: Yes (Hospitalization)
  Sender: FDA-Public Use
  Company Number: US-ASTRAZENECA-2009SE14258

PATIENT
  Age: 21830 Day
  Sex: Female
  Weight: 67.1 kg

DRUGS (9)
  1. SEROQUEL [Suspect]
     Indication: BIPOLAR DISORDER
     Route: 048
     Dates: start: 20090301, end: 20090920
  2. TRILEPTAL [Concomitant]
     Route: 048
  3. AMBIEN CR [Concomitant]
     Route: 048
  4. WELLBUTRIN [Concomitant]
  5. LEVOTHYROXINE SODIUM [Concomitant]
     Indication: HYPOTHYROIDISM
  6. STOOL SOFTENER [Concomitant]
     Indication: CONSTIPATION
  7. SIMVASTATIN [Concomitant]
     Indication: BLOOD CHOLESTEROL INCREASED
  8. ASPIRIN [Concomitant]
  9. LORAZEPAM [Concomitant]
     Route: 048

REACTIONS (2)
  - URINARY RETENTION [None]
  - URINARY TRACT INFECTION [None]
